FAERS Safety Report 5202512-X (Version None)
Quarter: 2006Q4

REPORT INFORMATION
  Report Type: 
  Country: None (occurrence: None)
  Receive Date: 20061017
  Receipt Date: 20051219
  Transmission Date: 20070319
  Serious: Yes (Hospitalization)
  Sender: FDA-Public Use
  Company Number: PHEH2005US11803

PATIENT
  Age: 83 Year
  Sex: Female

DRUGS (2)
  1. MIACALCIN [Suspect]
     Indication: OSTEOPOROSIS
     Dosage: 200 ID, QD, INTRANASAL
     Route: 045
     Dates: start: 20020101, end: 20050925
  2. SYNTHROID [Concomitant]

REACTIONS (5)
  - ABDOMINAL PAIN UPPER [None]
  - FLATULENCE [None]
  - GASTROOESOPHAGEAL REFLUX DISEASE [None]
  - PAIN [None]
  - STOMACH DISCOMFORT [None]
